FAERS Safety Report 5401909-2 (Version None)
Quarter: 2007Q3

REPORT INFORMATION
  Report Type: 
  Country: None (occurrence: None)
  Receive Date: 20070726
  Receipt Date: 20070718
  Transmission Date: 20080115
  Serious: Yes (Other)
  Sender: FDA-Public Use
  Company Number: THQ2007A00695

PATIENT
  Age: 5 Decade
  Sex: Male

DRUGS (1)
  1. ACTOS [Suspect]
     Dosage: 30 MG (30 MG, 1 IN 1 D), PER ORAL
     Route: 048
     Dates: start: 20070601, end: 20070601

REACTIONS (2)
  - SERUM SICKNESS [None]
  - STEVENS-JOHNSON SYNDROME [None]
